FAERS Safety Report 8328335-0 (Version None)
Quarter: 2012Q2

REPORT INFORMATION
  Report Type: 
  Country: None (occurrence: None)
  Receive Date: 20120502
  Receipt Date: 20120424
  Transmission Date: 20120825
  Serious: Yes (Hospitalization, Other)
  Sender: FDA-Public Use
  Company Number: US-BAYER-2011-120238

PATIENT
  Age: 29 Year
  Sex: Female
  Weight: 57.143 kg

DRUGS (6)
  1. TOPROL-XL [Concomitant]
     Dosage: UNK
     Dates: start: 20050101, end: 20110101
  2. ZOLOFT [Concomitant]
  3. YASMIN [Suspect]
     Indication: ACNE
     Dosage: UNK
     Dates: start: 20040503, end: 20050101
  4. YASMIN [Suspect]
     Indication: CONTRACEPTION
  5. METOPROLOL TARTRATE [Concomitant]
     Dosage: UNK
  6. TETRACYCLINE [Concomitant]
     Dosage: UNK
     Dates: start: 20010101, end: 20110101

REACTIONS (6)
  - TACHYCARDIA [None]
  - ANXIETY [None]
  - PAIN [None]
  - INJURY [None]
  - PULMONARY EMBOLISM [None]
  - EMOTIONAL DISTRESS [None]
